FAERS Safety Report 14018531 (Version 1)
Quarter: 2017Q3

REPORT INFORMATION
  Report Type: Report from Study
  Country: ES (occurrence: ES)
  Receive Date: 20170928
  Receipt Date: 20170928
  Transmission Date: 20171128
  Serious: Yes (Other)
  Sender: FDA-Public Use
  Company Number: ES-GILEAD-2017-0294923

PATIENT
  Age: 62 Year
  Sex: Male
  Weight: 118 kg

DRUGS (3)
  1. ZINC SULFATE [Concomitant]
     Active Substance: ZINC SULFATE\ZINC SULFATE ANHYDROUS
     Indication: ZINC DEFICIENCY
     Dates: start: 20160711
  2. LEDIPASVIR/SOFOSBUVIR [Suspect]
     Active Substance: LEDIPASVIR\SOFOSBUVIR
     Indication: HEPATITIS C RNA
     Dosage: 1 DF, QD
     Route: 048
     Dates: start: 20160711, end: 20161003
  3. RIBAVIRIN. [Suspect]
     Active Substance: RIBAVIRIN
     Indication: HEPATITIS C RNA
     Dosage: 600 MG, BID
     Route: 048
     Dates: start: 20160711, end: 20161003

REACTIONS (2)
  - Hyperbilirubinaemia [Recovered/Resolved]
  - Condition aggravated [Recovered/Resolved]

NARRATIVE: CASE EVENT DATE: 20160711
